FAERS Safety Report 23999335 (Version 1)
Quarter: 2024Q2

REPORT INFORMATION
  Report Type: Spontaneous
  Country: GB (occurrence: GB)
  Receive Date: 20240621
  Receipt Date: 20240621
  Transmission Date: 20240715
  Serious: Yes (Other)
  Sender: FDA-Public Use
  Company Number: GB-MHRA-EMIS-1796-c53d759e-1896-4306-a8ba-5123867c76c8

PATIENT
  Age: 77 Year
  Sex: Male
  Weight: 78 kg

DRUGS (5)
  1. BISOPROLOL [Suspect]
     Active Substance: BISOPROLOL\BISOPROLOL FUMARATE
     Route: 048
     Dates: start: 20240516, end: 20240612
  2. CYANOCOBALAMIN [Concomitant]
     Active Substance: CYANOCOBALAMIN
     Indication: Pancytopenia
     Route: 048
     Dates: start: 20240603
  3. FAMOTIDINE [Concomitant]
     Active Substance: FAMOTIDINE
     Dosage: AT NIGHT,
     Route: 048
     Dates: start: 20240425
  4. MAGNESIUM ASPARTATE [Concomitant]
     Active Substance: MAGNESIUM ASPARTATE
     Route: 048
     Dates: start: 20240425, end: 20240428
  5. CHOLECALCIFEROL [Concomitant]
     Active Substance: CHOLECALCIFEROL
     Dosage: TAKE ONE CAPSULE TWICE A WEEK FOR SEVEN WEEKS AND ONE CAPSULE IN WEEK EIGHT TO COMPLETE THE COURSE,
     Route: 048
     Dates: start: 20240425, end: 20240607

REACTIONS (1)
  - Sinus bradycardia [Recovering/Resolving]
